FAERS Safety Report 6070337-1 (Version None)
Quarter: 2009Q1

REPORT INFORMATION
  Report Type: 
  Country: None (occurrence: None)
  Receive Date: 20090203
  Receipt Date: 20081105
  Transmission Date: 20090719
  Serious: Yes (Other)
  Sender: FDA-Public Use
  Company Number: 2008S1019982

PATIENT
  Age: 65 Year
  Sex: Female

DRUGS (2)
  1. DICLOFENAC (DICLOFENAC) [Suspect]
     Indication: OSTEOARTHRITIS
  2. SPASMONAL [Concomitant]

REACTIONS (4)
  - DIARRHOEA [None]
  - GASTROINTESTINAL INFLAMMATION [None]
  - INTESTINAL STENOSIS [None]
  - INTESTINAL ULCER [None]
